FAERS Safety Report 26120979 (Version 2)
Quarter: 2025Q4

REPORT INFORMATION
  Report Type: Report from Study
  Country: US (occurrence: US)
  Receive Date: 20251204
  Receipt Date: 20251223
  Transmission Date: 20260119
  Serious: Yes (Other)
  Sender: DECIPHERA PHARMACEUTICALS
  Company Number: US-DECIPHERA PHARMACEUTICALS LLC-2025US001486

PATIENT
  Age: 72 Year
  Sex: Female

DRUGS (4)
  1. QINLOCK [Suspect]
     Active Substance: RIPRETINIB
     Indication: Gastrointestinal stromal tumour
     Dosage: 150 MILLIGRAM, QD
     Route: 061
     Dates: end: 202503
  2. QINLOCK [Suspect]
     Active Substance: RIPRETINIB
     Dosage: 150 MILLIGRAM, BID
     Route: 061
     Dates: start: 20250318
  3. CALCIUM [Concomitant]
     Active Substance: CALCIUM
     Indication: Product used for unknown indication
     Dosage: UNK
  4. THERAWORX RELIEF [Concomitant]
     Indication: Muscle spasms
     Dosage: UNK

REACTIONS (8)
  - Metastasis [Unknown]
  - Compression fracture [Unknown]
  - Muscle atrophy [Unknown]
  - Bone loss [Unknown]
  - Blood calcium increased [Unknown]
  - Osteopenia [Unknown]
  - Fatigue [Unknown]
  - Muscle spasms [Unknown]

NARRATIVE: CASE EVENT DATE: 20250101
